FAERS Safety Report 9052615 (Version 1)
Quarter: 2013Q1

REPORT INFORMATION
  Report Type: Spontaneous
  Country: US (occurrence: US)
  Receive Date: 20130207
  Receipt Date: 20130207
  Transmission Date: 20140127
  Serious: Yes (Death)
  Sender: FDA-Public Use
  Company Number: US-NOVOPROD-370167

PATIENT
  Age: 9 Month
  Sex: Female
  Weight: 8.62 kg

DRUGS (1)
  1. NOVOLOG [Suspect]
     Indication: OFF LABEL USE
     Dosage: POSSIBLY 200U EACH INJECTION, 5 TIMES
     Route: 058
     Dates: start: 20130128, end: 20130129

REACTIONS (2)
  - Intentional overdose [Fatal]
  - Victim of homicide [Fatal]
